FAERS Safety Report 9385561 (Version 2)
Quarter: 2014Q1

REPORT INFORMATION
  Report Type: Spontaneous
  Country: US (occurrence: US)
  Receive Date: 20130705
  Receipt Date: 20140108
  Transmission Date: 20141002
  Serious: Yes (Other)
  Sender: FDA-Public Use
  Company Number: US-GLAXOSMITHKLINE-A1030400A

PATIENT
  Age: 72 Year
  Sex: Male

DRUGS (1)
  1. AVANDIA [Suspect]
     Indication: HYPERTENSION
     Route: 048
     Dates: start: 20010613

REACTIONS (2)
  - Myocardial infarction [Unknown]
  - Cerebrovascular accident [Unknown]
